FAERS Safety Report 8560813-1 (Version None)
Quarter: 2012Q3

REPORT INFORMATION
  Report Type: 
  Country: None (occurrence: None)
  Receive Date: 20120802
  Receipt Date: 20120724
  Transmission Date: 20120928
  Serious: Yes (Other)
  Sender: FDA-Public Use
  Company Number: US-ASTRAZENECA-2010SE25150

PATIENT
  Age: 53 Year
  Sex: Female
  Weight: 68 kg

DRUGS (53)
  1. SEROQUEL [Suspect]
     Indication: POST-TRAUMATIC STRESS DISORDER
     Route: 048
     Dates: start: 20050101
  2. SEROQUEL [Suspect]
     Route: 048
     Dates: start: 20050101
  3. SEROQUEL [Suspect]
     Route: 048
     Dates: start: 20050101
  4. SEROQUEL [Suspect]
     Dosage: 300-500 MG AT NIGHT
     Route: 048
  5. SEROQUEL [Suspect]
     Route: 048
     Dates: start: 20050101
  6. SEROQUEL [Suspect]
     Route: 048
     Dates: start: 20050101
  7. SEROQUEL [Suspect]
     Route: 048
  8. SEROQUEL [Suspect]
     Dosage: 1 TABLET DAILY, 2-5 TABLETS AT BED TIME
     Route: 048
  9. SEROQUEL [Suspect]
     Dosage: 1 TABLET DAILY, 2-5 TABLETS AT BED TIME
     Route: 048
  10. SEROQUEL [Suspect]
     Dosage: 1 TABLET DAILY, 3-5 TABLETS AT BED TIME
     Route: 048
  11. SEROQUEL [Suspect]
     Dosage: 1 TABLET DAILY, 3-5 TABLETS AT BED TIME
     Route: 048
  12. SEROQUEL [Suspect]
     Dosage: THREE TO FIVE TABLETS
     Route: 048
  13. LOPRESSOR [Concomitant]
     Indication: CARDIAC DISORDER
  14. SEROQUEL [Suspect]
     Route: 048
     Dates: start: 20050101
  15. SEROQUEL [Suspect]
     Dosage: 300-500 MG AT NIGHT
     Route: 048
  16. SEROQUEL [Suspect]
     Route: 048
  17. VITAMIN D [Concomitant]
     Dosage: 5000 U
  18. SEROQUEL [Suspect]
     Indication: BIPOLAR DISORDER
     Route: 048
     Dates: start: 20050101
  19. SEROQUEL [Suspect]
     Dosage: UP TO 6 TABLETS DAILY AS NEEDED
     Route: 048
  20. SEROQUEL [Suspect]
     Dosage: UP TO 6 TABLETS DAILY AS NEEDED
     Route: 048
  21. SEROQUEL [Suspect]
     Dosage: UP TO 6 TABLETS DAILY AS NEEDED
     Route: 048
  22. SEROQUEL [Suspect]
     Route: 048
  23. ZONISAMIDE [Concomitant]
     Indication: AFFECTIVE DISORDER
     Route: 048
  24. DEPAKOTE ER [Concomitant]
     Indication: AFFECTIVE DISORDER
     Dosage: 500 MG DIALY WITH TID FREQUENCY
     Route: 048
  25. SEROQUEL [Suspect]
     Dosage: 300-500 MG AT NIGHT
     Route: 048
  26. SEROQUEL [Suspect]
     Route: 048
     Dates: start: 20050101
  27. SEROQUEL [Suspect]
     Dosage: 1 TABLET DAILY, 2-5 TABLETS AT BED TIME
     Route: 048
  28. SEROQUEL [Suspect]
     Route: 048
  29. SEROQUEL [Suspect]
     Dosage: 1 TABLET DAILY, 3-5 TABLETS AT BED TIME
     Route: 048
  30. SEROQUEL [Suspect]
     Dosage: THREE TO FIVE TABLETS
     Route: 048
  31. PREVACID [Suspect]
     Route: 065
  32. ZONISAMIDE [Concomitant]
  33. HYDROCHLOROTHIAZIDE [Concomitant]
     Indication: BLOOD PRESSURE
  34. LOTREL [Concomitant]
     Indication: BLOOD PRESSURE
     Dosage: 10-20 DAILY
  35. LAMICTAL [Concomitant]
  36. SEROQUEL [Suspect]
     Indication: BIPOLAR I DISORDER
     Route: 048
     Dates: start: 20050101
  37. SEROQUEL [Suspect]
     Indication: MANIA
     Route: 048
     Dates: start: 20050101
  38. SEROQUEL [Suspect]
     Route: 048
  39. LOTREL [Concomitant]
     Dosage: 5/20 MG, BID
  40. CALCIUM CARBONATE [Concomitant]
  41. SEROQUEL [Suspect]
     Route: 048
     Dates: start: 20050101
  42. SEROQUEL [Suspect]
     Dosage: 300-500 MG AT NIGHT
     Route: 048
  43. SEROQUEL [Suspect]
     Route: 048
     Dates: start: 20050101
  44. SEROQUEL [Suspect]
     Dosage: 1 TABLET DAILY, 2-5 TABLETS AT BED TIME
     Route: 048
  45. SEROQUEL [Suspect]
     Dosage: 1 TABLET DAILY, 3-5 TABLETS AT BED TIME
     Route: 048
  46. SEROQUEL [Suspect]
     Route: 048
  47. SEROQUEL [Suspect]
     Route: 048
  48. SEROQUEL [Suspect]
     Dosage: UP TO 6 TABLETS DAILY AS NEEDED
     Route: 048
  49. SEROQUEL [Suspect]
     Route: 048
  50. SEROQUEL [Suspect]
     Dosage: THREE TO FIVE TABLETS
     Route: 048
  51. SEROQUEL [Suspect]
     Dosage: THREE TO FIVE TABLETS
     Route: 048
  52. XANAX [Suspect]
     Indication: ANXIETY
     Route: 048
  53. RISPERDAL [Concomitant]

REACTIONS (16)
  - CONFUSIONAL STATE [None]
  - HALLUCINATION [None]
  - DYSPEPSIA [None]
  - DRUG DOSE OMISSION [None]
  - TOOTH ABSCESS [None]
  - ANXIETY [None]
  - VITAMIN D DECREASED [None]
  - MANIA [None]
  - BIPOLAR DISORDER [None]
  - AMNESIA [None]
  - SEDATION [None]
  - WEIGHT INCREASED [None]
  - HYPERTENSION [None]
  - PANIC ATTACK [None]
  - TACHYPHRENIA [None]
  - THERAPEUTIC RESPONSE UNEXPECTED [None]
